FAERS Safety Report 8907521 (Version 8)
Quarter: 2013Q3

REPORT INFORMATION
  Report Type: Report from Study
  Country: PL (occurrence: PL)
  Receive Date: 20121113
  Receipt Date: 20130702
  Transmission Date: 20140515
  Serious: Yes (Hospitalization)
  Sender: FDA-Public Use
  Company Number: PL-PFIZER INC-2012134323

PATIENT
  Age: 41 Year
  Sex: Male
  Weight: 95 kg

DRUGS (12)
  1. BOSUTINIB [Suspect]
     Indication: CONGENITAL CYSTIC KIDNEY DISEASE
     Dosage: MOST RECENT DOSE BEFORE THE EVENT: 2X2 TBL
     Route: 048
     Dates: start: 20120525, end: 20120603
  2. PERFALGAN [Suspect]
     Dosage: UNK
  3. KETONAL [Suspect]
     Dosage: UNK
  4. PRITOR PLUS [Suspect]
     Indication: HYPERTENSION
     Dosage: 80 MG, 1X1 TBL
     Route: 048
     Dates: start: 2006
  5. POLPRIL [Suspect]
     Indication: HYPERTENSION
     Dosage: 5 MG, 1X1TBL
     Route: 048
     Dates: start: 2006
  6. EUTHYROX [Concomitant]
     Indication: SUPPLEMENTATION THERAPY
     Dosage: UNK
     Dates: start: 2009
  7. HEPATIL [Concomitant]
     Indication: PROPHYLAXIS
     Dosage: UNK
     Dates: start: 2006, end: 20120603
  8. ORTRANOL [Concomitant]
     Indication: PROPHYLAXIS
     Dosage: UNK
     Dates: start: 2006, end: 20120603
  9. KALDIUM [Concomitant]
     Indication: SUPPLEMENTATION THERAPY
     Dosage: UNK
     Dates: start: 2006, end: 20120603
  10. MAGLEK B6 [Concomitant]
     Indication: SUPPLEMENTATION THERAPY
     Dosage: UNK
     Dates: start: 2006, end: 20120603
  11. GASTROLIT [Concomitant]
     Indication: SUPPLEMENTATION THERAPY
     Dosage: UNK
     Dates: start: 20120601, end: 20120603
  12. STOPPERAN [Concomitant]
     Indication: DIARRHOEA
     Dosage: UNK
     Dates: start: 20120601, end: 20120603

REACTIONS (3)
  - Pancreatic enzyme abnormality [Recovered/Resolved]
  - Hepatitis acute [Recovered/Resolved]
  - Renal failure acute [Recovered/Resolved]
